FAERS Safety Report 12913850 (Version 1)
Quarter: 2016Q4

REPORT INFORMATION
  Report Type: Spontaneous
  Country: US (occurrence: US)
  Receive Date: 20161105
  Receipt Date: 20161105
  Transmission Date: 20170207
  Serious: No
  Sender: FDA-Public Use
  Company Number: US-TEVA-701011ACC

PATIENT
  Sex: Female
  Weight: 61.74 kg

DRUGS (5)
  1. ATIVAN [Concomitant]
     Active Substance: LORAZEPAM
     Indication: ANXIETY
  2. DOXYCYCLINE. [Concomitant]
     Active Substance: DOXYCYCLINE
  3. ACYCLOVIR. [Concomitant]
     Active Substance: ACYCLOVIR
  4. FLUTICASONE NASAL SPRAY [Concomitant]
     Active Substance: FLUTICASONE\FLUTICASONE PROPIONATE
  5. PARAGARD T 380A [Suspect]
     Active Substance: COPPER
     Indication: CONTRACEPTION
     Dates: start: 20131031

REACTIONS (1)
  - Device expulsion [Recovered/Resolved]
